FAERS Safety Report 19716091 (Version 1)
Quarter: 2021Q3

REPORT INFORMATION
  Report Type: Spontaneous
  Country: DE (occurrence: DE)
  Receive Date: 20210818
  Receipt Date: 20210818
  Transmission Date: 20211014
  Serious: Yes (Hospitalization)
  Sender: FDA-Public Use
  Company Number: DE-TEVA-2021-DE-1941909

PATIENT
  Age: 71 Year
  Sex: Male
  Weight: 90 kg

DRUGS (9)
  1. CALCIUMFOLINAT [Suspect]
     Active Substance: LEUCOVORIN CALCIUM
     Route: 042
  2. APROVEL 150MG [Concomitant]
     Dosage: 300 MILLIGRAM DAILY; 1?0?1?0
     Route: 048
  3. IRINOTECAN [Suspect]
     Active Substance: IRINOTECAN
     Route: 042
  4. ALNA 0,4MG [Concomitant]
     Dosage: .4 MILLIGRAM DAILY; 0?0?1?0
     Route: 048
  5. ELIQUIS [Concomitant]
     Active Substance: APIXABAN
     Dosage: 5 MILLIGRAM DAILY; 1?0?1?0
     Route: 048
  6. 5?FU [Suspect]
     Active Substance: FLUOROURACIL
     Route: 042
  7. BENZBROMARON [Concomitant]
     Active Substance: BENZBROMARONE
     Dosage: 20 MILLIGRAM DAILY; 0?0?1?0
     Route: 048
  8. METOPROLOL. [Concomitant]
     Active Substance: METOPROLOL
     Dosage: 95 MILLIGRAM DAILY; 1?0?1?0
     Route: 048
  9. ALLOPURINOL. [Concomitant]
     Active Substance: ALLOPURINOL
     Dosage: 100 MILLIGRAM DAILY; 0?0?1?0
     Route: 048

REACTIONS (4)
  - Asthenia [Recovering/Resolving]
  - General physical health deterioration [Recovering/Resolving]
  - Fatigue [Recovering/Resolving]
  - Dizziness [Recovering/Resolving]
